FAERS Safety Report 18033888 (Version 1)
Quarter: 2020Q3

REPORT INFORMATION
  Report Type: Report from Study
  Country: IN (occurrence: IN)
  Receive Date: 20200716
  Receipt Date: 20200716
  Transmission Date: 20201103
  Serious: Yes (Other)
  Sender: FDA-Public Use
  Company Number: NVSC2020IN047215

PATIENT
  Age: 56 Year
  Sex: Male
  Weight: 95 kg

DRUGS (4)
  1. GALVUS MET [Suspect]
     Active Substance: METFORMIN HYDROCHLORIDE\VILDAGLIPTIN
     Indication: DIABETES MELLITUS
     Dosage: 1 DF, QD (1?0?0). SINCE 7 YEARS
     Route: 048
  2. GLYCOMET GP [Concomitant]
     Indication: DIABETES MELLITUS
     Dosage: 1 DF, TID (1?1?1?)
     Route: 048
  3. ATOREC [Concomitant]
     Indication: CARDIOVASCULAR DISORDER
     Dosage: 1 DF, QD (0?0?1)
     Route: 048
  4. GALVUS MET [Suspect]
     Active Substance: METFORMIN HYDROCHLORIDE\VILDAGLIPTIN
     Dosage: 1 DF, QD, (1?0?0)SINCE 7 YEARS
     Route: 048

REACTIONS (7)
  - Glucose urine present [Unknown]
  - Blood glucose fluctuation [Unknown]
  - Blood urea increased [Unknown]
  - Albumin urine [Unknown]
  - Glycosylated haemoglobin increased [Not Recovered/Not Resolved]
  - High density lipoprotein increased [Unknown]
  - Hyperglycaemia [Unknown]

NARRATIVE: CASE EVENT DATE: 20200215
